FAERS Safety Report 15889298 (Version 7)
Quarter: 2019Q2

REPORT INFORMATION
  Report Type: Spontaneous
  Country: US (occurrence: US)
  Receive Date: 20190130
  Receipt Date: 20190425
  Transmission Date: 20190711
  Serious: Yes (Other)
  Sender: FDA-Public Use
  Company Number: US-IPSEN BIOPHARMACEUTICALS, INC.-2019-01366

PATIENT
  Age: 55 Year
  Sex: Female

DRUGS (5)
  1. DYSPORT [Suspect]
     Active Substance: ABOBOTULINUMTOXINA
     Indication: SKIN WRINKLING
  2. DYSPORT [Suspect]
     Active Substance: ABOBOTULINUMTOXINA
     Indication: SKIN WRINKLING
  3. DYSPORT [Suspect]
     Active Substance: ABOBOTULINUMTOXINA
     Indication: OFF LABEL USE
  4. MULTIVITAMIN [Concomitant]
     Active Substance: VITAMINS
  5. DYSPORT [Suspect]
     Active Substance: ABOBOTULINUMTOXINA
     Indication: SKIN WRINKLING
     Dosage: 58 UNITS (FRONTALIS (20 UNITS), PROCERUS (30 UNITS) AND RHTIDS (4 UNITS TO EACH); 300 ML VIAL WAS RE
     Dates: start: 20181218, end: 20181218

REACTIONS (17)
  - Urticaria [Unknown]
  - Pruritus [Recovered/Resolved]
  - Ocular hyperaemia [Recovered/Resolved]
  - Ocular hyperaemia [Not Recovered/Not Resolved]
  - Intentional product use issue [Unknown]
  - Burning sensation [Recovered/Resolved]
  - Orbital oedema [Unknown]
  - Eye irritation [Recovered/Resolved]
  - Eye irritation [Not Recovered/Not Resolved]
  - Hyperaesthesia [Not Recovered/Not Resolved]
  - Skin discolouration [Not Recovered/Not Resolved]
  - Angioedema [Recovering/Resolving]
  - Eye swelling [Not Recovered/Not Resolved]
  - Periorbital swelling [Recovered/Resolved]
  - Skin abrasion [Recovered/Resolved]
  - Temperature intolerance [Unknown]
  - Burning sensation [Unknown]

NARRATIVE: CASE EVENT DATE: 201801
